FAERS Safety Report 18553319 (Version 2)
Quarter: 2020Q4

REPORT INFORMATION
  Report Type: Spontaneous
  Country: DE (occurrence: DE)
  Receive Date: 20201127
  Receipt Date: 20201215
  Transmission Date: 20210114
  Serious: Yes (Death, Hospitalization, Other)
  Sender: FDA-Public Use
  Company Number: DE-SHILPA MEDICARE LIMITED-SML-DE-2020-00639

PATIENT
  Age: 58 Year
  Sex: Female
  Weight: 57 kg

DRUGS (2)
  1. DOCETAXEL, UNKNOWN [Suspect]
     Active Substance: DOCETAXEL
     Indication: LUNG ADENOCARCINOMA
     Dosage: DAILY DOSE: 60 MG/M2 BODY SURFACE AREA FORMULATION: LIQUID
     Route: 065
     Dates: start: 20200903, end: 20201015
  2. VARGATEF [Suspect]
     Active Substance: NINTEDANIB
     Indication: LUNG ADENOCARCINOMA
     Route: 065
     Dates: start: 20200904, end: 20201024

REACTIONS (2)
  - Diarrhoea [Not Recovered/Not Resolved]
  - Sopor [Not Recovered/Not Resolved]

NARRATIVE: CASE EVENT DATE: 20201005
